FAERS Safety Report 8819171 (Version 2)
Quarter: 2012Q4

REPORT INFORMATION
  Report Type: 
  Country: US (occurrence: US)
  Receive Date: 20121001
  Receipt Date: 20121109
  Transmission Date: 20130627
  Serious: No
  Sender: FDA-Public Use
  Company Number: US-PFIZER INC-2012241891

PATIENT
  Age: 79 Year
  Sex: Female
  Weight: 59.86 kg

DRUGS (4)
  1. XANAX [Suspect]
     Indication: INSOMNIA
     Dosage: 0.5 mg, as needed
     Route: 048
  2. BENICAR [Suspect]
     Indication: BLOOD PRESSURE ABNORMAL
     Dosage: 20 mg, daily
     Route: 048
  3. LEXAPRO [Suspect]
     Indication: INSOMNIA
     Dosage: 5 mg, daily
     Route: 048
     Dates: end: 2012
  4. ALPRAZOLAM [Suspect]
     Indication: INSOMNIA
     Dosage: 0.5 mg, UNK
     Route: 048

REACTIONS (3)
  - Drug ineffective [Unknown]
  - Memory impairment [Unknown]
  - Blood glucose increased [Unknown]
